FAERS Safety Report 4507158-4 (Version None)
Quarter: 2004Q4

REPORT INFORMATION
  Report Type: 
  Country: None (occurrence: None)
  Receive Date: 20041025
  Receipt Date: 20040520
  Transmission Date: 20050328
  Serious: Yes (Hospitalization)
  Sender: FDA-Public Use
  Company Number: US-JNJFOC-20040504744

PATIENT
  Age: 54 Year
  Sex: Female
  Weight: 154.6766 kg

DRUGS (3)
  1. INFLIXIMAB (INFLIXIIMAB, RECOMBINANT) LYOPHILIZED POWDER [Suspect]
     Indication: RHEUMATOID ARTHRITIS
     Dosage: INTRAVENOUS
     Route: 042
     Dates: start: 20000824, end: 20020101
  2. BACTRIM [Concomitant]
  3. DAPSONE [Concomitant]

REACTIONS (1)
  - CELLULITIS [None]
